FAERS Safety Report 6832152-8 (Version None)
Quarter: 2010Q3

REPORT INFORMATION
  Report Type: 
  Country: None (occurrence: None)
  Receive Date: 20100712
  Receipt Date: 20100706
  Transmission Date: 20110219
  Serious: Yes (Hospitalization)
  Sender: FDA-Public Use
  Company Number: US-ASTRAZENECA-2010SE21246

PATIENT
  Sex: Female

DRUGS (6)
  1. SEROQUEL [Suspect]
     Indication: BIPOLAR DISORDER
     Route: 048
     Dates: start: 20100301
  2. ABILIFY [Concomitant]
     Route: 065
  3. CITALOPRAM HYDROBROMIDE [Concomitant]
     Route: 065
  4. LORAZEPAM [Concomitant]
     Route: 065
  5. LISINOPRIL [Concomitant]
     Route: 065
  6. PREMARIN [Concomitant]
     Route: 065

REACTIONS (1)
  - UTEROVAGINAL PROLAPSE [None]
